FAERS Safety Report 4642386-9 (Version None)
Quarter: 2005Q2

REPORT INFORMATION
  Report Type: 
  Country: None (occurrence: None)
  Receive Date: 20050422
  Receipt Date: 20050328
  Transmission Date: 20051028
  Serious: Yes (Hospitalization)
  Sender: FDA-Public Use
  Company Number: ES-GLAXOSMITHKLINE-B0376739A

PATIENT
  Age: 66 Year
  Sex: Female

DRUGS (4)
  1. FRAXIPARIN [Suspect]
     Indication: DRUG USE FOR UNKNOWN INDICATION
     Route: 058
     Dates: start: 20040518, end: 20040601
  2. IBUPROFEN [Suspect]
     Route: 048
     Dates: start: 20040518, end: 20040601
  3. TROXERUTIN [Suspect]
     Route: 048
     Dates: start: 20040518, end: 20040601
  4. OMEPRAZOLE [Suspect]
     Route: 048
     Dates: start: 20040518, end: 20040601

REACTIONS (1)
  - ERYTHEMA MULTIFORME [None]
